FAERS Safety Report 8287305-1 (Version None)
Quarter: 2012Q2

REPORT INFORMATION
  Report Type: 
  Country: None (occurrence: None)
  Receive Date: 20120416
  Receipt Date: 20120416
  Transmission Date: 20120825
  Serious: Yes (Life-Threatening, Other)
  Sender: FDA-Public Use
  Company Number: None

PATIENT
  Age: 52 Year
  Sex: Female
  Weight: 81.646 kg

DRUGS (1)
  1. BOTOX [Suspect]
     Indication: TORTICOLLIS
     Dosage: 12 INJECTIONS 4 TIMES
     Route: 019
     Dates: start: 20110301, end: 20120301

REACTIONS (3)
  - SUICIDAL IDEATION [None]
  - DEPRESSION [None]
  - ANXIETY [None]
